FAERS Safety Report 9167899 (Version 1)
Quarter: 2013Q1

REPORT INFORMATION
  Report Type: Spontaneous
  Country: AU (occurrence: None)
  Receive Date: 20130305
  Receipt Date: 20130305
  Transmission Date: 20140127
  Serious: Yes (Disabling)
  Sender: FDA-Public Use
  Company Number: AUR-APL-2013-01669

PATIENT
  Age: 72 Year
  Sex: Female

DRUGS (2)
  1. RAMIPRIL [Suspect]
     Indication: PRODUCT USED FOR UNKNOWN INDICATION
  2. KARVEA [Suspect]
     Indication: BLOOD PRESSURE

REACTIONS (6)
  - Rash pruritic [None]
  - Swelling [None]
  - Feeling hot [None]
  - Fatigue [None]
  - Rash papular [None]
  - Cough [None]
